FAERS Safety Report 18096860 (Version 5)
Quarter: 2021Q3

REPORT INFORMATION
  Report Type: Spontaneous
  Country: US (occurrence: US)
  Receive Date: 20200731
  Receipt Date: 20210824
  Transmission Date: 20211014
  Serious: Yes (Hospitalization, Other)
  Sender: FDA-Public Use
  Company Number: US-PFIZER INC-2020288156

PATIENT
  Age: 40 Year
  Sex: Female

DRUGS (6)
  1. TMP?SMX [Concomitant]
     Active Substance: SULFAMETHOXAZOLE\TRIMETHOPRIM
     Dosage: UNK, 1X/DAY (ALONG WITH ATENOLOL)
  2. TACROLIMUS. [Suspect]
     Active Substance: TACROLIMUS
     Indication: IMMUNOSUPPRESSION
     Dosage: 1 MG, 2X/DAY
  3. METHYLPREDNISOLONE. [Concomitant]
     Active Substance: METHYLPREDNISOLONE
     Indication: IMMUNOSUPPRESSION
     Dosage: 4 MG, 2X/DAY
  4. ACICLOVIR [Concomitant]
     Active Substance: ACYCLOVIR
     Indication: PROPHYLAXIS
     Dosage: 400 MG, 2X/DAY
  5. CLARITHROMYCIN. [Concomitant]
     Active Substance: CLARITHROMYCIN
     Indication: PNEUMONIA
     Dosage: 500 MG, 2X/DAY
  6. ATENOLOL. [Concomitant]
     Active Substance: ATENOLOL
     Indication: SINUS TACHYCARDIA
     Dosage: 12.5 MG, DAILY

REACTIONS (8)
  - Hyperkalaemia [Recovering/Resolving]
  - Hypertension [Recovering/Resolving]
  - Confusional state [Recovered/Resolved]
  - Diabetic ketoacidosis [Unknown]
  - Encephalopathy [Recovering/Resolving]
  - Muscle spasms [Recovered/Resolved]
  - Acute kidney injury [Recovering/Resolving]
  - Hyperglycaemia [Recovering/Resolving]
